FAERS Safety Report 14254042 (Version 3)
Quarter: 2018Q2

REPORT INFORMATION
  Report Type: Spontaneous
  Country: US (occurrence: US)
  Receive Date: 20171205
  Receipt Date: 20180529
  Transmission Date: 20180711
  Serious: Yes (Other)
  Sender: FDA-Public Use
  Company Number: US-DSJP-DSU-2017-149413

PATIENT

DRUGS (5)
  1. BENICAR [Suspect]
     Active Substance: OLMESARTAN MEDOXOMIL
     Dosage: 20 MG HALF, QD
     Route: 048
     Dates: start: 20080625, end: 20170918
  2. BENICAR [Suspect]
     Active Substance: OLMESARTAN MEDOXOMIL
     Indication: HYPERTENSION
     Dosage: 20 MG, QD
     Route: 048
     Dates: start: 20100101, end: 20120620
  3. BENICAR HCT [Suspect]
     Active Substance: HYDROCHLOROTHIAZIDE\OLMESARTAN MEDOXOMIL
     Dosage: 20-12.5 MG HALF, QD
     Route: 048
     Dates: start: 20170109, end: 20170710
  4. BENICAR [Suspect]
     Active Substance: OLMESARTAN MEDOXOMIL
     Dosage: 5 MG, QD
  5. BENICAR HCT [Suspect]
     Active Substance: HYDROCHLOROTHIAZIDE\OLMESARTAN MEDOXOMIL
     Indication: HYPERTENSION
     Dosage: 20-12.5, QD
     Route: 048
     Dates: start: 20120620, end: 20170109

REACTIONS (3)
  - Drug administration error [Unknown]
  - Small intestinal obstruction [Recovered/Resolved]
  - Hiatus hernia [Unknown]

NARRATIVE: CASE EVENT DATE: 20120605
